FAERS Safety Report 8306789-3 (Version None)
Quarter: 2012Q1

REPORT INFORMATION
  Report Type: 
  Country: None (occurrence: None)
  Receive Date: 20120327
  Receipt Date: 20090729
  Transmission Date: 20120608
  Serious: Yes (Other)
  Sender: FDA-Public Use
  Company Number: PHEH2007US14856

PATIENT
  Sex: Female

DRUGS (4)
  1. PRILOSEC [Concomitant]
  2. GLEEVEC [Suspect]
     Indication: CHRONIC MYELOID LEUKAEMIA
     Dosage: 400 MG, QD, ORAL ; 800 MG, QD ; 400 MG, QD
     Route: 048
  3. VITAMINS (NO INGREDIENTS/SUBSTANCES) [Concomitant]
  4. IRON (IRON) [Suspect]

REACTIONS (5)
  - GASTROINTESTINAL HAEMORRHAGE [None]
  - LOSS OF CONSCIOUSNESS [None]
  - DRUG INTERACTION [None]
  - HAEMATOCHEZIA [None]
  - MUSCLE SPASMS [None]
